FAERS Safety Report 15360078 (Version 1)
Quarter: 2018Q4

REPORT INFORMATION
  Report Type: Spontaneous
  Country: DE (occurrence: DE)
  Receive Date: 20180907
  Receipt Date: 20180907
  Transmission Date: 20190204
  Serious: Yes (Congenital Anomaly, Other)
  Sender: FDA-Public Use
  Company Number: DE-ACCORD-071384

PATIENT

DRUGS (10)
  1. AMITRIPTYLINE [Suspect]
     Active Substance: AMITRIPTYLINE
     Route: 064
  2. LEVONORGESTREL. [Suspect]
     Active Substance: LEVONORGESTREL
     Dosage: UNK ()
     Route: 064
  3. MORPHINE [Suspect]
     Active Substance: MORPHINE
     Dosage: UNK ()
     Route: 064
  4. METOPROLOL. [Suspect]
     Active Substance: METOPROLOL
     Route: 064
  5. ETHINYLESTRADIOL/ETHINYLESTRADIOLUM PROPANSULFO [Suspect]
     Active Substance: ETHINYL ESTRADIOL
     Dosage: UNK ()
     Route: 064
  6. PANTOPRAZOLE [Suspect]
     Active Substance: PANTOPRAZOLE
     Route: 064
  7. SUMATRIPTAN. [Suspect]
     Active Substance: SUMATRIPTAN
     Dosage: UNK ()
     Route: 064
  8. METOCLOPRAMIDE. [Suspect]
     Active Substance: METOCLOPRAMIDE
     Dosage: UNK ()
     Route: 064
  9. METAMIZOLE SODIUM [Suspect]
     Active Substance: METAMIZOLE SODIUM
     Dosage: UNK ()
     Route: 064
  10. DICLOFENAC [Suspect]
     Active Substance: DICLOFENAC
     Dosage: UNK ()
     Route: 064

REACTIONS (3)
  - Pulmonary artery stenosis [Unknown]
  - Foetal exposure during pregnancy [Unknown]
  - Atrial septal defect [Unknown]
